FAERS Safety Report 12779885 (Version 10)
Quarter: 2022Q3

REPORT INFORMATION
  Report Type: Spontaneous
  Country: US (occurrence: US)
  Receive Date: 20160926
  Receipt Date: 20220919
  Transmission Date: 20221026
  Serious: Yes (Hospitalization, Other)
  Sender: FDA-Public Use
  Company Number: US-PFIZER INC-2016447048

PATIENT
  Age: 73 Year
  Sex: Female
  Weight: 80 kg

DRUGS (9)
  1. XELJANZ [Suspect]
     Active Substance: TOFACITINIB CITRATE
     Indication: Rheumatoid arthritis
     Dosage: 5 MG
  2. XELJANZ [Suspect]
     Active Substance: TOFACITINIB CITRATE
     Indication: Scleroderma
     Dosage: 5 MG, 2X/DAY (TWO 5MG TABLETS; ONE IN THE MORNING AND ONE AT NIGHT)
     Route: 048
  3. XELJANZ [Suspect]
     Active Substance: TOFACITINIB CITRATE
     Indication: Arthritis
     Dosage: UNK
     Dates: end: 202104
  4. XELJANZ [Suspect]
     Active Substance: TOFACITINIB CITRATE
     Dosage: UNK
     Dates: start: 202107
  5. ARAVA [Concomitant]
     Active Substance: LEFLUNOMIDE
     Dosage: 20 MG, 1X/DAY (ONCE IN AFTERNOON)
     Route: 048
  6. CRESTOR [Concomitant]
     Active Substance: ROSUVASTATIN CALCIUM
     Indication: Blood cholesterol abnormal
     Dosage: 20 MG, DAILY
     Route: 048
  7. CYMBALTA [Concomitant]
     Active Substance: DULOXETINE HYDROCHLORIDE
     Dosage: UNK
  8. ASPIRIN [Concomitant]
     Active Substance: ASPIRIN
     Dosage: 1 MG, 1X/DAY
  9. ZITHROMAX [Concomitant]
     Active Substance: AZITHROMYCIN DIHYDRATE
     Dosage: UNK

REACTIONS (25)
  - Herpes zoster [Unknown]
  - Thrombosis [Unknown]
  - Headache [Unknown]
  - Hypertension [Unknown]
  - Back injury [Unknown]
  - Malaise [Unknown]
  - Blood triglycerides increased [Unknown]
  - Blood potassium increased [Unknown]
  - Movement disorder [Unknown]
  - Gait disturbance [Unknown]
  - Pain in extremity [Unknown]
  - Cough [Unknown]
  - Carpal tunnel syndrome [Unknown]
  - Stomatitis [Unknown]
  - Dyspnoea [Unknown]
  - Memory impairment [Unknown]
  - Feeling abnormal [Unknown]
  - Upper respiratory tract infection [Unknown]
  - Laryngitis [Unknown]
  - Rales [Unknown]
  - Dyspnoea exertional [Unknown]
  - Eyelid rash [Unknown]
  - Joint swelling [Not Recovered/Not Resolved]
  - Condition aggravated [Not Recovered/Not Resolved]
  - Disturbance in attention [Unknown]

NARRATIVE: CASE EVENT DATE: 20160828
